FAERS Safety Report 4917934-1 (Version None)
Quarter: 2006Q1

REPORT INFORMATION
  Report Type: 
  Country: None (occurrence: None)
  Receive Date: 20060221
  Receipt Date: 20051011
  Transmission Date: 20060701
  Serious: Yes (Hospitalization, Other)
  Sender: FDA-Public Use
  Company Number: US-MERCK-0510USA06631

PATIENT
  Age: 74 Year
  Sex: Male

DRUGS (9)
  1. PROTONIX [Concomitant]
     Route: 065
  2. CELEXA [Concomitant]
     Route: 065
  3. DEPAKOTE [Concomitant]
     Route: 065
  4. DARVOCET-N 50 [Concomitant]
     Route: 065
  5. VIOXX [Suspect]
     Route: 048
  6. ASPIRIN [Concomitant]
     Route: 065
  7. ISOSORBIDE [Concomitant]
     Route: 065
  8. PRAVACHOL [Concomitant]
     Route: 065
  9. COREG [Concomitant]
     Route: 065

REACTIONS (5)
  - CEREBROVASCULAR ACCIDENT [None]
  - CHEST PAIN [None]
  - CORONARY ARTERY DISEASE [None]
  - PHIMOSIS [None]
  - URINARY TRACT DISORDER [None]
